FAERS Safety Report 23835851 (Version 1)
Quarter: 2024Q2

REPORT INFORMATION
  Report Type: Spontaneous
  Country: US (occurrence: US)
  Receive Date: 20240509
  Receipt Date: 20240509
  Transmission Date: 20240716
  Serious: No
  Sender: FDA-Public Use
  Company Number: US-MYLANLABS-2024M1038370

PATIENT
  Age: 84 Year
  Sex: Female
  Weight: 61.23 kg

DRUGS (1)
  1. TYRVAYA [Suspect]
     Active Substance: VARENICLINE TARTRATE
     Indication: Dry eye
     Dosage: 0.03 MG, BID (1 SPRAY IN EACH NOSTRIL 12 HOURS APART, 8AM AND 8PM)
     Route: 045
     Dates: start: 20240418, end: 20240424

REACTIONS (3)
  - Anxiety [Unknown]
  - Sneezing [Recovered/Resolved]
  - Cough [Not Recovered/Not Resolved]

NARRATIVE: CASE EVENT DATE: 20240418
